FAERS Safety Report 17581905 (Version 1)
Quarter: 2020Q1

REPORT INFORMATION
  Report Type: Spontaneous
  Country: US (occurrence: US)
  Receive Date: 20200323
  Receipt Date: 20200323
  Transmission Date: 20200409
  Serious: Yes (Other)
  Sender: FDA-Public Use
  Company Number: None

PATIENT
  Sex: Female

DRUGS (2)
  1. VERZENIO [Suspect]
     Active Substance: ABEMACICLIB
     Indication: BREAST CANCER
     Route: 048
     Dates: start: 20191017
  2. VERZENIO [Suspect]
     Active Substance: ABEMACICLIB
     Indication: HEPATIC CANCER
     Route: 048
     Dates: start: 20191017

REACTIONS (1)
  - Emergency care examination [None]
